FAERS Safety Report 8081522-1 (Version None)
Quarter: 2012Q1

REPORT INFORMATION
  Report Type: 
  Country: None (occurrence: None)
  Receive Date: 20120130
  Receipt Date: 20120124
  Transmission Date: 20120608
  Serious: Yes (Hospitalization, Congenital Anomaly, Other)
  Sender: FDA-Public Use
  Company Number: US-PFIZER INC-2011089808

PATIENT
  Sex: Male
  Weight: 3.8 kg

DRUGS (16)
  1. SERTRALINE HYDROCHLORIDE [Suspect]
     Dosage: 100 MG, HALF TABLET EVERY MORNING
     Route: 064
     Dates: start: 20081008
  2. CYMBALTA [Concomitant]
     Indication: DEPRESSION
     Dosage: 60 MG, UNK
     Route: 064
     Dates: start: 20080710, end: 20080813
  3. WELLBUTRIN [Concomitant]
     Dosage: 150 MG, FOR 7 DAYS AND THEN DISCONTINUED
     Route: 064
     Dates: start: 20080723, end: 20080813
  4. ZOLOFT [Suspect]
     Dosage: 50 MG, UNK
     Route: 064
     Dates: start: 20080827
  5. WELLBUTRIN [Concomitant]
     Indication: DEPRESSION
     Dosage: 300 MG, UNK
     Route: 064
     Dates: start: 20080710
  6. SERTRALINE HYDROCHLORIDE [Suspect]
     Indication: DEPRESSION
     Dosage: 50 MG, HALF TABLET EVERY MORNING
     Route: 064
     Dates: start: 20080812
  7. SERTRALINE HYDROCHLORIDE [Suspect]
     Dosage: 100 MG,1 AND HALF TABLET ONCE DAILY EVERY MORNING
     Route: 064
     Dates: start: 20081106
  8. ALPRAZOLAM [Concomitant]
     Indication: ANXIETY
     Dosage: UNK
     Route: 064
     Dates: start: 20080710
  9. NORGESTREL/ETHINYL ESTRADIOL [Concomitant]
     Route: 064
  10. ZOLOFT [Suspect]
     Dosage: 100 MG, UNK
     Route: 064
     Dates: start: 20081008
  11. SERTRALINE HYDROCHLORIDE [Suspect]
     Dosage: 100 MG, UNK
     Route: 064
     Dates: start: 20081028
  12. ZOLOFT [Suspect]
     Indication: DEPRESSION
     Dosage: 150 MG, DAILY
     Route: 064
     Dates: start: 20080813, end: 20090323
  13. SERTRALINE HYDROCHLORIDE [Suspect]
     Dosage: 100 MG, DAILY
     Route: 064
     Dates: start: 20090322
  14. SERTRALINE HYDROCHLORIDE [Suspect]
     Dosage: 100 MG, DAILY
     Route: 064
     Dates: start: 20080827
  15. MULTI-VITAMINS [Concomitant]
     Route: 064
  16. VALTREX [Concomitant]
     Route: 064

REACTIONS (10)
  - CRANIOSYNOSTOSIS [None]
  - PLAGIOCEPHALY [None]
  - LOWER RESPIRATORY TRACT INFECTION [None]
  - CEPHALHAEMATOMA [None]
  - SCAPHOCEPHALY [None]
  - PNEUMONIA [None]
  - UPPER RESPIRATORY TRACT INFECTION [None]
  - FOETAL EXPOSURE DURING PREGNANCY [None]
  - CONJUNCTIVITIS [None]
  - OTITIS MEDIA [None]
